FAERS Safety Report 6915560-6 (Version None)
Quarter: 2010Q3

REPORT INFORMATION
  Report Type: 
  Country: None (occurrence: None)
  Receive Date: 20100809
  Receipt Date: 20100728
  Transmission Date: 20110219
  Serious: Yes (Other)
  Sender: FDA-Public Use
  Company Number: IT-ELI_LILLY_AND_COMPANY-IT201007007849

PATIENT
  Age: 71 Year
  Sex: Male

DRUGS (10)
  1. GEMZAR [Suspect]
     Indication: METASTATIC RENAL CELL CARCINOMA
     Dosage: 600 MG/M2, ON DAYS 1 AND 8 EVERY 28 DAYS
     Route: 042
  2. GEMZAR [Suspect]
     Dosage: 800 MG/M2, ON DAYS 1 AND 8 EVERY 28 DAYS
     Route: 042
  3. GEMZAR [Suspect]
     Dosage: 1000 MG/M2, ON DAYS 1 AND 8 EVERY 28 DAYS
     Route: 042
  4. FLUOROURACIL [Concomitant]
     Indication: METASTATIC RENAL CELL CARCINOMA
     Dosage: 400 MG/M2, ON DAYS 1 AND 8 EVERY 28 DAYS
     Route: 042
  5. FLUOROURACIL [Concomitant]
     Dosage: 400 MG/M2, ON DAYS 1 AND 8 EVERY 28 DAYS
     Route: 042
  6. FLUOROURACIL [Concomitant]
     Dosage: 500 MG/M2, ON DAYS 1 AND 8 EVERY 28 DAYS
     Route: 042
  7. BEVACIZUMAB [Concomitant]
     Indication: METASTATIC RENAL CELL CARCINOMA
     Dosage: 10 MG/KG, EVERY 2 WEEKS
     Route: 042
  8. PROLEUKIN [Concomitant]
     Indication: METASTATIC RENAL CELL CARCINOMA
     Dosage: 1000000 D/F, TWICE A DAY ON EVERY 8,9,15,16 DAY IN CYCLE
  9. PROLEUKIN [Concomitant]
     Dosage: 1000000 D/F, ONCE A DAY FROM DAY 10 TO 12 AND DAY 17 TO 19 OF THE CYCLE
     Route: 058
  10. ROFERON-A [Concomitant]
     Indication: METASTATIC RENAL CELL CARCINOMA
     Dosage: 3000000 D/F, ONCE A DAY ON DAYS 10,12,17, AND 19 OF THE CYCLE
     Route: 058

REACTIONS (2)
  - MITRAL VALVE INCOMPETENCE [None]
  - PULMONARY HYPERTENSION [None]
